FAERS Safety Report 13376741 (Version 1)
Quarter: 2017Q1

REPORT INFORMATION
  Report Type: Spontaneous
  Country: CN (occurrence: CN)
  Receive Date: 20170328
  Receipt Date: 20170328
  Transmission Date: 20170429
  Serious: Yes (Hospitalization, Other)
  Sender: FDA-Public Use
  Company Number: CN-ABBVIE-17P-035-1922697-00

PATIENT
  Age: 43 Year
  Sex: Female

DRUGS (5)
  1. QUETIAPINE FUMARATE. [Concomitant]
     Active Substance: QUETIAPINE FUMARATE
     Indication: PRODUCT USED FOR UNKNOWN INDICATION
     Route: 065
  2. CLOZAPINE. [Concomitant]
     Active Substance: CLOZAPINE
     Dosage: (0.3 G AND 0.4 TWICE)
     Route: 048
     Dates: end: 20170116
  3. DEPAKINE [Suspect]
     Active Substance: VALPROATE SODIUM
     Indication: DISSOCIATIVE DISORDER
     Dosage: EXTENDED RELEASE
     Route: 048
     Dates: start: 20170107, end: 20170116
  4. CLOZAPINE. [Concomitant]
     Active Substance: CLOZAPINE
     Dosage: (0.3 G AND 0.4 TWICE)
     Route: 048
     Dates: start: 20170103
  5. CLOZAPINE. [Concomitant]
     Active Substance: CLOZAPINE
     Indication: PRODUCT USED FOR UNKNOWN INDICATION
     Route: 048
     Dates: start: 20161228, end: 20170111

REACTIONS (1)
  - Hepatic function abnormal [Recovering/Resolving]

NARRATIVE: CASE EVENT DATE: 20170109
